FAERS Safety Report 15260423 (Version 3)
Quarter: 2018Q3

REPORT INFORMATION
  Report Type: Report from Study
  Country: US (occurrence: US)
  Receive Date: 20180809
  Receipt Date: 20180813
  Transmission Date: 20181010
  Serious: Yes (Hospitalization)
  Sender: FDA-Public Use
  Company Number: US-JNJFOC-20180808196

PATIENT
  Age: 18 Year
  Sex: Female
  Weight: 46.6 kg

DRUGS (3)
  1. AZATHIOPRINE. [Concomitant]
     Active Substance: AZATHIOPRINE
     Route: 065
  2. HUMIRA [Concomitant]
     Active Substance: ADALIMUMAB
     Route: 065
     Dates: start: 20150730
  3. REMICADE [Suspect]
     Active Substance: INFLIXIMAB
     Indication: INFLAMMATORY BOWEL DISEASE
     Route: 042
     Dates: start: 20140904, end: 20150619

REACTIONS (2)
  - Inflammatory bowel disease [Recovered/Resolved]
  - Eosinophilic colitis [Not Recovered/Not Resolved]

NARRATIVE: CASE EVENT DATE: 20160811
